FAERS Safety Report 9455374 (Version 1)
Quarter: 2013Q3

REPORT INFORMATION
  Report Type: Spontaneous
  Country: US (occurrence: US)
  Receive Date: 20130813
  Receipt Date: 20130813
  Transmission Date: 20140515
  Serious: Yes (Other)
  Sender: FDA-Public Use
  Company Number: PHHY2013US084806

PATIENT
  Age: 27 Year
  Sex: Female

DRUGS (8)
  1. GILENYA [Suspect]
     Indication: RELAPSING-REMITTING MULTIPLE SCLEROSIS
     Dosage: UNK OT, UNK
     Route: 048
     Dates: end: 201205
  2. AMPYRA [Concomitant]
     Dosage: 2 DF, QD (1 IN MORNING AND 1 IN EVENING)
  3. AVONEX [Concomitant]
     Dosage: 30 UG, UNK
     Dates: start: 20120909
  4. MEDROL [Concomitant]
     Dosage: 4 MG, UNK
  5. PHENERGAN [Concomitant]
     Dosage: 25 MG, UNK
  6. BACLOFEN [Concomitant]
     Indication: MUSCLE SPASTICITY
     Dosage: 1 DF, TID
  7. NEURONTIN [Concomitant]
     Indication: TREMOR
  8. PRIMIDONE [Suspect]
     Indication: TREMOR
     Dosage: 2 DF, TID

REACTIONS (2)
  - Mass [Unknown]
  - Blood pressure increased [Unknown]
